FAERS Safety Report 17494232 (Version 1)
Quarter: 2020Q1

REPORT INFORMATION
  Report Type: Spontaneous
  Country: US (occurrence: US)
  Receive Date: 20200303
  Receipt Date: 20200303
  Transmission Date: 20200409
  Serious: No
  Sender: FDA-Public Use
  Company Number: US-AMNEAL PHARMACEUTICALS-2019-IPXL-01076

PATIENT
  Age: 66 Year
  Sex: Female

DRUGS (3)
  1. RYTARY [Suspect]
     Active Substance: CARBIDOPA\LEVODOPA
     Indication: PARKINSON^S DISEASE
     Dosage: 48.75/195MG, 4 DOSAGE FORM, 4 /DAY
     Route: 048
  2. RYTARY [Suspect]
     Active Substance: CARBIDOPA\LEVODOPA
     Dosage: 48.75/195MG, 2 DOSAGE FORM, 5 /DAY
     Route: 048
  3. RYTARY [Suspect]
     Active Substance: CARBIDOPA\LEVODOPA
     Dosage: 61.25/245MG,  3 CAPSULES 5 TIMES A DAY
     Route: 048

REACTIONS (9)
  - Pyrexia [Unknown]
  - Prescribed overdose [Unknown]
  - Skin tightness [Unknown]
  - Weight decreased [Unknown]
  - Aggression [Unknown]
  - Dyskinesia [Unknown]
  - Lip swelling [Unknown]
  - Change in sustained attention [Unknown]
  - Hyperhidrosis [Unknown]

NARRATIVE: CASE EVENT DATE: 201904
